FAERS Safety Report 9052738 (Version 2)
Quarter: 2013Q1

REPORT INFORMATION
  Report Type: Spontaneous
  Country: CA (occurrence: CA)
  Receive Date: 20130207
  Receipt Date: 20130315
  Transmission Date: 20140127
  Serious: Yes (Other)
  Sender: FDA-Public Use
  Company Number: CA-JNJFOC-20130201099

PATIENT
  Age: 87 None
  Sex: Female

DRUGS (3)
  1. XARELTO [Suspect]
     Indication: CEREBROVASCULAR ACCIDENT PROPHYLAXIS
     Route: 048
     Dates: start: 20120528, end: 20120530
  2. XARELTO [Suspect]
     Indication: ATRIAL FIBRILLATION
     Route: 048
     Dates: start: 20120528, end: 20120530
  3. PROTON PUMP INHIBITORS [Concomitant]
     Route: 065

REACTIONS (4)
  - Intra-abdominal haematoma [Recovered/Resolved]
  - Haemoglobin decreased [Unknown]
  - Renal impairment [Unknown]
  - Dizziness [Unknown]
